FAERS Safety Report 5444631-9 (Version None)
Quarter: 2007Q3

REPORT INFORMATION
  Report Type: 
  Country: None (occurrence: None)
  Receive Date: 20070906
  Receipt Date: 20070823
  Transmission Date: 20080115
  Serious: Yes (Other)
  Sender: FDA-Public Use
  Company Number: US-MERCK-0708USA05871

PATIENT
  Age: 29 Year
  Sex: Female

DRUGS (3)
  1. CRIXIVAN [Suspect]
     Indication: HIV INFECTION
     Route: 065
  2. ZERIT [Concomitant]
     Indication: HIV INFECTION
     Route: 065
  3. LAMIVUDINE [Concomitant]
     Indication: HIV INFECTION
     Route: 065

REACTIONS (2)
  - ABORTION INDUCED [None]
  - DRUG EXPOSURE DURING PREGNANCY [None]
